FAERS Safety Report 8192825-4 (Version None)
Quarter: 2012Q1

REPORT INFORMATION
  Report Type: 
  Country: None (occurrence: None)
  Receive Date: 20120308
  Receipt Date: 20120305
  Transmission Date: 20120608
  Serious: No
  Sender: FDA-Public Use
  Company Number: US-PFIZER INC-2012033560

PATIENT
  Sex: Male
  Weight: 113.38 kg

DRUGS (4)
  1. NORCO [Concomitant]
     Dosage: UNK
  2. NAPROXEN [Concomitant]
     Dosage: UNK
  3. NICOTROL [Suspect]
     Indication: SMOKING CESSATION THERAPY
     Dosage: 4 TIMES A DAY; 6-16 CARTRIDGES PER DAY
     Route: 055
     Dates: start: 20100111, end: 20120208
  4. WELLBUTRIN [Concomitant]
     Dosage: UNK

REACTIONS (1)
  - DRUG INEFFECTIVE [None]
